FAERS Safety Report 16716208 (Version 1)
Quarter: 2019Q3

REPORT INFORMATION
  Report Type: Spontaneous
  Country: US (occurrence: US)
  Receive Date: 20190819
  Receipt Date: 20190819
  Transmission Date: 20191005
  Serious: Yes (Death, Life-Threatening)
  Sender: FDA-Public Use
  Company Number: US-PFIZER INC-2019351183

PATIENT
  Age: 76 Year
  Sex: Female
  Weight: 101.9 kg

DRUGS (4)
  1. PACLITAXEL. [Suspect]
     Active Substance: PACLITAXEL
     Indication: FALLOPIAN TUBE CANCER
     Dosage: UNK (OVER 3 HRS ON DAY 1. CYCLE: 21 DAYS)
     Route: 042
     Dates: end: 20110701
  2. DOCETAXEL. [Suspect]
     Active Substance: DOCETAXEL
     Indication: FALLOPIAN TUBE CANCER
     Dosage: UNK (OVER 1 HR ON DAY 1. CYCLE: 21 DAYS)
     Route: 042
  3. CARBOPLATIN. [Suspect]
     Active Substance: CARBOPLATIN
     Indication: FALLOPIAN TUBE CANCER
     Dosage: UNK (AUC 5 OVER 30 MIN ON DAY 1. CYCLE: 21 DAYS)
     Route: 042
     Dates: end: 20110701
  4. BEVACIZUMAB. [Suspect]
     Active Substance: BEVACIZUMAB
     Indication: FALLOPIAN TUBE CANCER
     Dosage: UNK (OVER 30-90 MIN ON DAY 1. CYCLE: 21 DAYS)
     Route: 042
     Dates: end: 20110314

REACTIONS (2)
  - Second primary malignancy [Fatal]
  - Neutrophil count decreased [Fatal]

NARRATIVE: CASE EVENT DATE: 20110128
